FAERS Safety Report 23597920 (Version 2)
Quarter: 2024Q2

REPORT INFORMATION
  Report Type: Report from Study
  Country: US (occurrence: US)
  Receive Date: 20240305
  Receipt Date: 20240415
  Transmission Date: 20240715
  Serious: Yes (Other)
  Sender: FDA-Public Use
  Company Number: US-002147023-NVSC2024US040691

PATIENT
  Sex: Female

DRUGS (1)
  1. LEQVIO [Suspect]
     Active Substance: INCLISIRAN SODIUM
     Indication: Product used for unknown indication
     Dosage: UNK
     Route: 058
     Dates: start: 20240214

REACTIONS (16)
  - Atrial fibrillation [Unknown]
  - Neuropathy peripheral [Unknown]
  - Rhinorrhoea [Unknown]
  - Nasal congestion [Unknown]
  - Arthritis [Unknown]
  - Arthralgia [Unknown]
  - Pain in extremity [Unknown]
  - Gout [Unknown]
  - Asthenia [Unknown]
  - Malaise [Unknown]
  - Blood pressure increased [Unknown]
  - Cough [Unknown]
  - Nasopharyngitis [Unknown]
  - Heart rate increased [Unknown]
  - Hypersensitivity [Unknown]
  - Dysstasia [Unknown]
